FAERS Safety Report 7965009-X (Version None)
Quarter: 2011Q4

REPORT INFORMATION
  Report Type: 
  Country: None (occurrence: None)
  Receive Date: 20111205
  Receipt Date: 20111124
  Transmission Date: 20120403
  Serious: Yes (Other)
  Sender: FDA-Public Use
  Company Number: 2011MA017018

PATIENT
  Age: 33 Year
  Sex: Female

DRUGS (5)
  1. IBUPROFEN [Concomitant]
  2. MISOPROSTOL [Concomitant]
  3. DICLOFENAC SODIUM [Suspect]
     Indication: ABORTION INDUCED
     Dosage: 100 MG; RTL
     Route: 054
  4. VACCINE [Concomitant]
  5. METRONIDAZOLE [Suspect]
     Indication: ABORTION INDUCED
     Dosage: 1 GM; RTL
     Route: 054

REACTIONS (2)
  - DYSKINESIA [None]
  - MATERNAL EXPOSURE DURING PREGNANCY [None]
